FAERS Safety Report 25752461 (Version 1)
Quarter: 2025Q3

REPORT INFORMATION
  Report Type: Spontaneous
  Country: US (occurrence: None)
  Receive Date: 20250902
  Receipt Date: 20250902
  Transmission Date: 20251020
  Serious: Yes (Hospitalization, Other)
  Sender: FDA-CTU
  Company Number: None

PATIENT
  Age: 60 Year
  Sex: Male
  Weight: 58.5 kg

DRUGS (13)
  1. KEYTRUDA [Suspect]
     Active Substance: PEMBROLIZUMAB
     Indication: Bladder cancer
     Dates: start: 20250528, end: 20250821
  2. Urostomy supplies [Concomitant]
  3. OMEPRAZOLE [Concomitant]
     Active Substance: OMEPRAZOLE
  4. TRAZODONE [Concomitant]
     Active Substance: TRAZODONE HYDROCHLORIDE
  5. PREDNISONE [Concomitant]
     Active Substance: PREDNISONE
  6. kolonopin [Concomitant]
  7. HEPARIN [Concomitant]
     Active Substance: HEPARIN SODIUM
  8. flagl [Concomitant]
  9. IVERMECTIN [Concomitant]
     Active Substance: IVERMECTIN
  10. VITAMIN D [Concomitant]
     Active Substance: VITAMIN D NOS
  11. multivi vitamin [Concomitant]
  12. ZINC [Concomitant]
     Active Substance: ZINC
  13. VITAMIN C [Concomitant]
     Active Substance: ASCORBIC ACID

REACTIONS (7)
  - Dyspepsia [None]
  - Eructation [None]
  - Abdominal pain [None]
  - Hypophagia [None]
  - Vomiting [None]
  - Infrequent bowel movements [None]
  - Thrombosis [None]

NARRATIVE: CASE EVENT DATE: 20250804
